FAERS Safety Report 5915290-3 (Version None)
Quarter: 2008Q4

REPORT INFORMATION
  Report Type: 
  Country: None (occurrence: None)
  Receive Date: 20081010
  Receipt Date: 20081003
  Transmission Date: 20090506
  Serious: Yes (Hospitalization)
  Sender: FDA-Public Use
  Company Number: JP-BAYER-200812056BYL

PATIENT
  Age: 41 Year
  Sex: Male
  Weight: 68 kg

DRUGS (9)
  1. NEXAVAR [Suspect]
     Indication: RENAL CELL CARCINOMA STAGE IV
     Dosage: TOTAL DAILY DOSE: 800 MG  UNIT DOSE: 200 MG
     Route: 048
     Dates: start: 20080501, end: 20080612
  2. NEXAVAR [Suspect]
     Dosage: UNIT DOSE: 200 MG
     Route: 048
     Dates: start: 20080613
  3. CODEINE PHOSPHATE [Concomitant]
     Route: 048
     Dates: start: 20080806
  4. ALTAT [Concomitant]
     Dosage: TOTAL DAILY DOSE: 75 MG  UNIT DOSE: 75 MG
     Route: 048
     Dates: start: 20080806
  5. PRIMPERAN TAB [Concomitant]
     Dosage: UNIT DOSE: 5 MG
     Route: 048
     Dates: start: 20071205
  6. OXYCONTIN [Concomitant]
     Indication: RENAL CELL CARCINOMA STAGE IV
     Dosage: UNIT DOSE: 5 MG
     Route: 048
     Dates: start: 20071205, end: 20071226
  7. MUCOSAL-L [Concomitant]
     Route: 048
     Dates: start: 20080307
  8. MS CONTIN [Concomitant]
     Indication: RENAL CELL CARCINOMA STAGE IV
     Dosage: UNIT DOSE: 10 MG
     Route: 048
     Dates: start: 20080402
  9. MAGLAX [Concomitant]
     Dosage: UNIT DOSE: 250 MG
     Route: 048
     Dates: start: 20080416

REACTIONS (5)
  - ANOREXIA [None]
  - DRY SKIN [None]
  - HYPOTHYROIDISM [None]
  - SINUS TACHYCARDIA [None]
  - STOMATITIS [None]
